FAERS Safety Report 14064416 (Version 5)
Quarter: 2018Q3

REPORT INFORMATION
  Report Type: Spontaneous
  Country: JP (occurrence: JP)
  Receive Date: 20171009
  Receipt Date: 20180905
  Transmission Date: 20181010
  Serious: Yes (Other)
  Sender: FDA-Public Use
  Company Number: JP-009507513-1710JPN000596J

PATIENT
  Age: 19 Year
  Sex: Male
  Weight: 46 kg

DRUGS (9)
  1. ACELIO [Concomitant]
     Active Substance: ACETAMINOPHEN
     Indication: PAIN MANAGEMENT
     Dosage: 1000 MG, QD
     Route: 042
     Dates: start: 20160817, end: 20160817
  2. ESLAX INTRAVENOUS 50MG/5.0ML [Suspect]
     Active Substance: ROCURONIUM BROMIDE
     Indication: NEUROMUSCULAR BLOCKING THERAPY
     Dosage: 30 MG, QD
     Route: 042
     Dates: start: 20160817, end: 20160817
  3. DESFLURANE. [Suspect]
     Active Substance: DESFLURANE
     Indication: MAINTENANCE OF ANAESTHESIA
     Dosage: UNK
     Route: 055
  4. PROPOFOL. [Suspect]
     Active Substance: PROPOFOL
     Indication: INDUCTION OF ANAESTHESIA
     Dosage: 100 MG, QD
     Route: 042
     Dates: start: 20160817, end: 20160817
  5. SUPRANE [Concomitant]
     Active Substance: DESFLURANE
     Indication: MAINTENANCE OF ANAESTHESIA
     Dosage: 320 ML, QD
     Route: 007
     Dates: start: 20160817, end: 20160817
  6. ULTIVA [Suspect]
     Active Substance: REMIFENTANIL HYDROCHLORIDE
     Indication: MAINTENANCE OF ANAESTHESIA
     Dosage: 3.7 MG, QD
     Route: 042
     Dates: start: 20160817, end: 20160817
  7. FENTANYL. [Suspect]
     Active Substance: FENTANYL
     Indication: MAINTENANCE OF ANAESTHESIA
     Dosage: 300 MICROGRAM, TID
     Route: 042
     Dates: start: 20160817, end: 20160817
  8. ROPION [Concomitant]
     Active Substance: FLURBIPROFEN AXETIL
     Indication: PAIN MANAGEMENT
     Dosage: 50 MG, QD
     Route: 042
     Dates: start: 20160817, end: 20160817
  9. FENTANYL. [Suspect]
     Active Substance: FENTANYL
     Indication: PAIN

REACTIONS (1)
  - Rhabdomyolysis [Recovered/Resolved]

NARRATIVE: CASE EVENT DATE: 20160818
